FAERS Safety Report 10622204 (Version 1)
Quarter: 2014Q4

REPORT INFORMATION
  Report Type: Spontaneous
  Country: US (occurrence: None)
  Receive Date: 20141202
  Receipt Date: 20141202
  Transmission Date: 20150529
  Serious: Yes (Life-Threatening, Hospitalization, Other)
  Sender: FDA-Public Use
  Company Number: None

PATIENT
  Age: 63 Year
  Sex: Female
  Weight: 107.5 kg

DRUGS (2)
  1. METHYLPRED [Suspect]
     Active Substance: METHYLPREDNISOLONE
     Indication: RASH
     Dosage: 1 ROW OF TABS EACH DAY
  2. METHYLPRED [Suspect]
     Active Substance: METHYLPREDNISOLONE
     Indication: ARTHROPOD BITE
     Dosage: 1 ROW OF TABS EACH DAY

REACTIONS (18)
  - Rectal haemorrhage [None]
  - Vomiting [None]
  - Blood potassium decreased [None]
  - Pruritus [None]
  - Pollakiuria [None]
  - Decreased appetite [None]
  - Dyspnoea [None]
  - Nausea [None]
  - Urinary tract infection [None]
  - Abdominal pain upper [None]
  - Cough [None]
  - Vision blurred [None]
  - Headache [None]
  - Escherichia infection [None]
  - Hyperhidrosis [None]
  - Thrombosis [None]
  - Chills [None]
  - Abdominal distension [None]

NARRATIVE: CASE EVENT DATE: 20140805
